FAERS Safety Report 9837995 (Version 2)
Quarter: 2014Q2

REPORT INFORMATION
  Report Type: Spontaneous
  Country: US (occurrence: None)
  Receive Date: 20131205
  Receipt Date: 20140416
  Transmission Date: 20141212
  Serious: No
  Sender: FDA-Public Use
  Company Number: 163-POMAL-13110055

PATIENT
  Age: 83 Year
  Sex: Male

DRUGS (1)
  1. POMALYST [Suspect]
     Indication: PLASMA CELL MYELOMA
     Dosage: 4 MG, 1 IN 1 D, PO
     Route: 048
     Dates: start: 201309

REACTIONS (4)
  - Drug dose omission [None]
  - Constipation [None]
  - Fatigue [None]
  - Adverse drug reaction [None]
